FAERS Safety Report 7823234-2 (Version None)
Quarter: 2011Q4

REPORT INFORMATION
  Report Type: 
  Country: None (occurrence: None)
  Receive Date: 20111019
  Receipt Date: 20090720
  Transmission Date: 20120403
  Serious: No
  Sender: FDA-Public Use
  Company Number: 2009BI022560

PATIENT
  Age: 37 Year
  Sex: Male

DRUGS (3)
  1. NEXIUM [Concomitant]
     Indication: PREMEDICATION
     Dates: start: 20090701
  2. ZANTAC [Concomitant]
     Indication: PREMEDICATION
     Route: 048
     Dates: start: 20090701
  3. TYSABRI [Suspect]
     Indication: MULTIPLE SCLEROSIS
     Route: 042
     Dates: start: 20090715, end: 20101201

REACTIONS (4)
  - HYPERSENSITIVITY [None]
  - INFUSION RELATED REACTION [None]
  - HYPOAESTHESIA [None]
  - MUSCULAR WEAKNESS [None]
